FAERS Safety Report 5126760-2 (Version None)
Quarter: 2006Q4

REPORT INFORMATION
  Report Type: 
  Country: None (occurrence: None)
  Receive Date: 20061013
  Receipt Date: 20061004
  Transmission Date: 20070319
  Serious: Yes (Other)
  Sender: FDA-Public Use
  Company Number: JP-BRISTOL-MYERS SQUIBB COMPANY-13533260

PATIENT
  Age: 33 Year
  Sex: Male

DRUGS (13)
  1. ZERIT [Suspect]
     Indication: HIV INFECTION
     Dosage: DOSED FROM 13-SEP-04 TO 18-OCT-04. RESTARTED 09-MAR-05 TO UNKNOWN.
     Route: 048
     Dates: start: 20040913
  2. EPIVIR [Suspect]
     Indication: HIV INFECTION
     Dosage: STARTED 13-SEP-04 STOPPED 18-OCT-04. RESTARTED 12-JAN-05 TO UNKNOWN.
     Route: 048
     Dates: start: 20040913
  3. VIRAMUNE [Suspect]
     Indication: HIV INFECTION
     Route: 048
     Dates: start: 20040913, end: 20040926
  4. STOCRIN [Concomitant]
     Route: 048
     Dates: start: 20041019
  5. COMBIVIR [Concomitant]
     Route: 048
     Dates: start: 20041019, end: 20050111
  6. KALETRA [Concomitant]
     Route: 048
     Dates: start: 20040927, end: 20041018
  7. KLARICID [Concomitant]
     Dosage: START DATE 30-MAY-04/END DATE 22-JUN-04. RESTARTED 23-JUN-2004 TO UNKNOWN.
     Route: 048
     Dates: start: 20040530
  8. ALLELOCK [Concomitant]
     Route: 048
     Dates: start: 20040922, end: 20041202
  9. SOLU-MEDROL [Concomitant]
     Route: 042
     Dates: start: 20040927, end: 20040929
  10. PREDONINE [Concomitant]
     Indication: DRUG ERUPTION
     Dosage: IV(50 MG/D 23/09/04,60MG/D FROM 24TO26/09/04)PO TITRATED FROM 30MGX2/D ON 30/09/04 TO 5MG/D 02/12/04
     Route: 042
     Dates: start: 20040923, end: 20040926
  11. BACTRIM [Concomitant]
     Dosage: 01-JUL-2004 TO 26-SEP-2004 RESTARTED 12-NOV-04 1 DF/DAY TO UNKNOWN
     Route: 048
     Dates: start: 20040701
  12. VIREAD [Concomitant]
     Route: 048
     Dates: start: 20050112, end: 20050308
  13. ADRIAMYCIN PFS [Concomitant]
     Route: 042
     Dates: start: 20041204, end: 20050210

REACTIONS (1)
  - GLUCOSE TOLERANCE IMPAIRED [None]
